FAERS Safety Report 22234811 (Version 1)
Quarter: 2023Q2

REPORT INFORMATION
  Report Type: Spontaneous
  Country: IT (occurrence: IT)
  Receive Date: 20230420
  Receipt Date: 20230420
  Transmission Date: 20230721
  Serious: Yes (Hospitalization)
  Sender: FDA-Public Use
  Company Number: None

PATIENT
  Age: 5 Year
  Sex: Male
  Weight: 18.4 kg

DRUGS (15)
  1. TOPIRAMATE [Suspect]
     Active Substance: TOPIRAMATE
     Indication: Epilepsy
     Dosage: 75 MILLIGRAM
     Route: 065
     Dates: start: 20190101
  2. VALPROATE SODIUM [Suspect]
     Active Substance: VALPROATE SODIUM
     Indication: Epilepsy
     Dosage: 600 MILLIGRAM
     Route: 065
     Dates: start: 20190101
  3. DIAZEPAM [Concomitant]
     Active Substance: DIAZEPAM
     Dosage: 10 MILLIGRAM
     Route: 065
  4. MORPHINE [Concomitant]
     Active Substance: MORPHINE
     Dosage: 4 MILLIGRAM
     Route: 065
  5. TRAZODONE HYDROCHLORIDE [Concomitant]
     Active Substance: TRAZODONE HYDROCHLORIDE
     Dosage: 4 DROP (1/12 MILLILITRE)
     Route: 065
  6. CLONIDINE [Concomitant]
     Active Substance: CLONIDINE
     Dosage: 2.5 MILLIGRAM, 1 PLASTER +1/2 EVERY 6 DAYS
     Route: 065
  7. GABAPENTIN [Concomitant]
     Active Substance: GABAPENTIN
     Dosage: 500 MILLIGRAM
     Route: 065
  8. Dibaselab [Concomitant]
     Dosage: UNK
     Route: 065
  9. UNASYN [Concomitant]
     Active Substance: AMPICILLIN SODIUM\SULBACTAM SODIUM
     Dosage: 3 GRAM
     Route: 065
  10. FLUTICASONE [Concomitant]
     Active Substance: FLUTICASONE
     Dosage: 200 MICROGRAM
     Route: 065
  11. VALIUM [Concomitant]
     Active Substance: DIAZEPAM
     Dosage: 15 DROP (1/12 MILLILITRE)
     Route: 065
  12. ZOFRAN [Concomitant]
     Active Substance: ONDANSETRON HYDROCHLORIDE
     Dosage: 3 GRAM
     Route: 065
  13. NIAPRAZINA [Concomitant]
     Dosage: 21 MILLIGRAM
     Route: 065
  14. BACLOFEN [Concomitant]
     Active Substance: BACLOFEN
     Dosage: 50 MILLIGRAM
     Route: 065
  15. NITRAZEPAM [Concomitant]
     Active Substance: NITRAZEPAM
     Dosage: 5 MILLIGRAM
     Route: 065

REACTIONS (1)
  - Renal tubular acidosis [Not Recovered/Not Resolved]

NARRATIVE: CASE EVENT DATE: 20230402
